FAERS Safety Report 14828192 (Version 4)
Quarter: 2018Q2

REPORT INFORMATION
  Report Type: Spontaneous
  Country: US (occurrence: US)
  Receive Date: 20180430
  Receipt Date: 20180608
  Transmission Date: 20180711
  Serious: Yes (Hospitalization)
  Sender: FDA-Public Use
  Company Number: US-GLAXOSMITHKLINE-US2018GSK074462

PATIENT
  Age: 72 Year
  Sex: Female

DRUGS (1)
  1. FLOVENT [Suspect]
     Active Substance: FLUTICASONE PROPIONATE
     Indication: DYSPNOEA
     Dosage: UNK
     Dates: start: 2008

REACTIONS (3)
  - Neck pain [Unknown]
  - Biopsy [Unknown]
  - Back pain [Unknown]

NARRATIVE: CASE EVENT DATE: 20180412
